FAERS Safety Report 20207384 (Version 1)
Quarter: 2021Q4

REPORT INFORMATION
  Report Type: Spontaneous
  Country: US (occurrence: US)
  Receive Date: 20211220
  Receipt Date: 20211220
  Transmission Date: 20220303
  Serious: No
  Sender: FDA-Public Use
  Company Number: US-GSKCCFUS-Case-01241526_AE-72757

PATIENT
  Age: 61 Year
  Sex: Female

DRUGS (1)
  1. BREO ELLIPTA [Suspect]
     Active Substance: FLUTICASONE FUROATE\VILANTEROL TRIFENATATE
     Indication: Asthma
     Dosage: UNK, 200 MCG/25 MCG
     Route: 055

REACTIONS (7)
  - Throat irritation [Recovering/Resolving]
  - Respiratory tract irritation [Unknown]
  - Gastrooesophageal reflux disease [Unknown]
  - Laryngitis [Not Recovered/Not Resolved]
  - Dysphonia [Unknown]
  - Oesophageal pain [Unknown]
  - Wrong technique in product usage process [Unknown]

NARRATIVE: CASE EVENT DATE: 20211211
